FAERS Safety Report 19310739 (Version 1)
Quarter: 2021Q2

REPORT INFORMATION
  Report Type: Spontaneous
  Country: DE (occurrence: DE)
  Receive Date: 20210526
  Receipt Date: 20210526
  Transmission Date: 20210717
  Serious: Yes (Hospitalization, Other)
  Sender: FDA-Public Use
  Company Number: DE-ANIPHARMA-2021-DE-000087

PATIENT
  Age: 57 Year
  Sex: Male

DRUGS (1)
  1. CHLORTHALIDONE (NON?SPECIFIC) [Suspect]
     Active Substance: CHLORTHALIDONE
     Indication: HYPERTENSION

REACTIONS (2)
  - Angle closure glaucoma [Recovered/Resolved]
  - Choroidal effusion [Recovered/Resolved]
